FAERS Safety Report 24151638 (Version 1)
Quarter: 2024Q3

REPORT INFORMATION
  Report Type: Spontaneous
  Country: US (occurrence: US)
  Receive Date: 20240730
  Receipt Date: 20240730
  Transmission Date: 20241016
  Serious: No
  Sender: PERRIGO
  Company Number: US-PERRIGO-24US003036

PATIENT
  Age: 83 Year
  Sex: Male

DRUGS (1)
  1. LORATADINE [Suspect]
     Active Substance: LORATADINE
     Indication: Productive cough
     Dosage: UNKNOWN, UNKNOWN
     Route: 048

REACTIONS (2)
  - Dizziness [Recovered/Resolved]
  - Off label use [Unknown]
